FAERS Safety Report 24126495 (Version 2)
Quarter: 2024Q3

REPORT INFORMATION
  Report Type: Spontaneous
  Country: US (occurrence: US)
  Receive Date: 20240723
  Receipt Date: 20240725
  Transmission Date: 20241016
  Serious: No
  Sender: PFIZER
  Company Number: US-PFIZER INC-202400220798

PATIENT
  Age: 74 Year
  Sex: Male
  Weight: 102.05 kg

DRUGS (6)
  1. PAXLOVID [Suspect]
     Active Substance: NIRMATRELVIR\RITONAVIR
     Indication: COVID-19 treatment
     Dosage: [NIRMATRELVIR 300 MG]/[RITONAVIR 100 MG]; 2X/DAY;
     Route: 048
     Dates: start: 20240720, end: 20240720
  2. PAXLOVID [Suspect]
     Active Substance: NIRMATRELVIR\RITONAVIR
     Dosage: 3 DF
     Route: 048
     Dates: start: 20240721, end: 20240721
  3. FLECAINIDE [Suspect]
     Active Substance: FLECAINIDE
     Indication: Arrhythmia
     Dosage: TWO DOSES
     Dates: start: 20240720, end: 20240720
  4. FLECAINIDE [Suspect]
     Active Substance: FLECAINIDE
     Dosage: UNK
     Dates: start: 20240721
  5. DIGOXIN [Suspect]
     Active Substance: DIGOXIN
     Dosage: ONE DOSE
     Dates: start: 20240720, end: 20240720
  6. DIGOXIN [Suspect]
     Active Substance: DIGOXIN
     Dosage: UNK
     Dates: start: 20240721

REACTIONS (2)
  - Dizziness [Recovered/Resolved]
  - Contraindicated product administered [Unknown]

NARRATIVE: CASE EVENT DATE: 20240720
